FAERS Safety Report 16912186 (Version 3)
Quarter: 2020Q1

REPORT INFORMATION
  Report Type: Spontaneous
  Country: FR (occurrence: FR)
  Receive Date: 20191014
  Receipt Date: 20200110
  Transmission Date: 20200409
  Serious: Yes (Hospitalization)
  Sender: FDA-Public Use
  Company Number: FR-EMD SERONO-E2B_90071339

PATIENT
  Age: 64 Year
  Sex: Female
  Weight: 90 kg

DRUGS (16)
  1. BISOPROLOL FUMARATE. [Suspect]
     Active Substance: BISOPROLOL FUMARATE
     Indication: POISONING DELIBERATE
     Route: 048
  2. ESCITALOPRAM [Suspect]
     Active Substance: ESCITALOPRAM OXALATE
     Indication: POISONING DELIBERATE
     Route: 048
  3. OXAZEPAM. [Suspect]
     Active Substance: OXAZEPAM
     Indication: POISONING DELIBERATE
     Route: 048
  4. METFORMIN [Suspect]
     Active Substance: METFORMIN HYDROCHLORIDE
     Indication: POISONING DELIBERATE
     Route: 048
  5. APIXABAN [Concomitant]
     Active Substance: APIXABAN
     Indication: PRODUCT USED FOR UNKNOWN INDICATION
  6. KARDEGIC [Concomitant]
     Active Substance: ASPIRIN DL-LYSINE
     Indication: PRODUCT USED FOR UNKNOWN INDICATION
     Dosage: ONE SACHET IN THE EVENING
  7. ESOMEPRAZOLE. [Concomitant]
     Active Substance: ESOMEPRAZOLE MAGNESIUM
     Indication: PRODUCT USED FOR UNKNOWN INDICATION
  8. GABAPENTINE [Concomitant]
     Active Substance: GABAPENTIN
     Indication: PRODUCT USED FOR UNKNOWN INDICATION
  9. ESCITALOPRAM [Suspect]
     Active Substance: ESCITALOPRAM OXALATE
     Dosage: DELIBERATE MEDICINAL SELF-POISONING TO AN UNKNOWN AMOUNT
     Route: 048
     Dates: start: 20190207, end: 20190207
  10. METFORMIN [Suspect]
     Active Substance: METFORMIN HYDROCHLORIDE
     Dosage: (30 TABLETS) DELIBERATE MEDICINAL SELF-POISONING
     Route: 048
     Dates: start: 20190207, end: 20190207
  11. OXAZEPAM. [Suspect]
     Active Substance: OXAZEPAM
     Dosage: DELIBERATE MEDICINAL SELF-POISONING TO AN UNKNOWN AMOUNT
     Route: 048
     Dates: start: 20190207, end: 20190207
  12. MOVICOL [Concomitant]
     Active Substance: POLYETHYLENE GLYCOL 3350\POTASSIUM CHLORIDE\SODIUM BICARBONATE\SODIUM CHLORIDE
     Indication: PRODUCT USED FOR UNKNOWN INDICATION
     Dosage: 1 TO 2 SACHET IN THE MORNING
  13. GLICLAZIDE [Concomitant]
     Active Substance: GLICLAZIDE
     Indication: PRODUCT USED FOR UNKNOWN INDICATION
  14. BISOPROLOL FUMARATE. [Suspect]
     Active Substance: BISOPROLOL FUMARATE
     Dosage: 28 TABLETS (DELIBERATE MEDICINAL SELF-POISONING)
     Route: 048
     Dates: start: 20190207, end: 20190207
  15. LANTUS [Concomitant]
     Active Substance: INSULIN GLARGINE
     Indication: PRODUCT USED FOR UNKNOWN INDICATION
  16. NOVORAPID [Concomitant]
     Active Substance: INSULIN ASPART
     Indication: PRODUCT USED FOR UNKNOWN INDICATION

REACTIONS (10)
  - Hypoglycaemia [Recovered/Resolved]
  - Bradycardia [Recovered/Resolved]
  - Respiratory acidosis [Recovered/Resolved]
  - Confusional state [Recovered/Resolved]
  - Electrocardiogram QT prolonged [Recovered/Resolved]
  - Atrioventricular block [Recovered/Resolved]
  - Lactic acidosis [Recovered/Resolved]
  - Diarrhoea [Recovered/Resolved]
  - Hypoventilation [Recovered/Resolved]
  - Somnolence [Recovered/Resolved]

NARRATIVE: CASE EVENT DATE: 20190207
